FAERS Safety Report 21185788 (Version 4)
Quarter: 2022Q3

REPORT INFORMATION
  Report Type: Other
  Country: MX (occurrence: None)
  Receive Date: 20220808
  Receipt Date: 20220929
  Transmission Date: 20221027
  Serious: Yes (Other)
  Sender: FDA-Public Use
  Company Number: MX-ROCHE-3155920

PATIENT
  Age: 49 Year
  Sex: Female

DRUGS (1)
  1. OCREVUS [Suspect]
     Active Substance: OCRELIZUMAB
     Indication: Multiple sclerosis
     Dosage: OCRELIZUMAB VIAL 300MG/10ML (30MG/ML)
     Route: 042
     Dates: start: 20191207

REACTIONS (4)
  - COVID-19 [Not Recovered/Not Resolved]
  - Immune system disorder [Not Recovered/Not Resolved]
  - Spinal cord injury [Not Recovered/Not Resolved]
  - Post-acute COVID-19 syndrome [Not Recovered/Not Resolved]

NARRATIVE: CASE EVENT DATE: 20220701
